FAERS Safety Report 8221993-0 (Version None)
Quarter: 2012Q1

REPORT INFORMATION
  Report Type: 
  Country: None (occurrence: None)
  Receive Date: 20120320
  Receipt Date: 20120314
  Transmission Date: 20120608
  Serious: Yes (Hospitalization)
  Sender: FDA-Public Use
  Company Number: VE-ABBOTT-12P-178-0915801-00

PATIENT
  Sex: Female
  Weight: 62 kg

DRUGS (3)
  1. HUMIRA [Suspect]
     Indication: RHEUMATOID ARTHRITIS
     Route: 058
     Dates: start: 20070601, end: 20120125
  2. INSULIN [Concomitant]
     Indication: DIABETES MELLITUS
     Route: 058
  3. TRANGOREX [Concomitant]
     Indication: ARRHYTHMIA
     Route: 048

REACTIONS (2)
  - HYPERTENSIVE CRISIS [None]
  - VIITH NERVE PARALYSIS [None]
